FAERS Safety Report 5190211-2 (Version None)
Quarter: 2006Q4

REPORT INFORMATION
  Report Type: 
  Country: None (occurrence: None)
  Receive Date: 20061222
  Receipt Date: 20061027
  Transmission Date: 20070319
  Serious: No
  Sender: FDA-Public Use
  Company Number: US-AMGEN-US198453

PATIENT
  Age: 63 Year
  Sex: Female

DRUGS (7)
  1. ARANESP [Suspect]
     Indication: ANAEMIA
     Route: 058
     Dates: start: 20061005
  2. CARDIZEM [Concomitant]
  3. CLONIDINE [Concomitant]
  4. LOPRESSOR [Concomitant]
  5. LOTENSIN [Concomitant]
  6. DIOVAN [Concomitant]
  7. LASIX [Concomitant]

REACTIONS (1)
  - HYPERTENSION [None]
